FAERS Safety Report 5588388-X (Version None)
Quarter: 2008Q1

REPORT INFORMATION
  Report Type: 
  Country: None (occurrence: None)
  Receive Date: 20080111
  Receipt Date: 20071106
  Transmission Date: 20080703
  Serious: No
  Sender: FDA-Public Use
  Company Number: A0691701A

PATIENT
  Age: 56 Year
  Sex: Female

DRUGS (10)
  1. TYKERB [Suspect]
     Indication: BREAST CANCER
     Dosage: 5TAB PER DAY
     Route: 048
     Dates: start: 20071028
  2. XELODA [Concomitant]
  3. DIGITEK [Concomitant]
  4. NEXIUM [Concomitant]
  5. SYNTHROID [Concomitant]
  6. ELAVIL [Concomitant]
  7. GABAPENTIN [Concomitant]
  8. VITAMIN B6 [Concomitant]
  9. LOMOTIL [Concomitant]
  10. FLAGYL [Concomitant]

REACTIONS (6)
  - CHILLS [None]
  - DIARRHOEA [None]
  - PAIN OF SKIN [None]
  - PHARYNGOLARYNGEAL PAIN [None]
  - PYREXIA [None]
  - RASH [None]
